FAERS Safety Report 8956232 (Version 2)
Quarter: 2012Q4

REPORT INFORMATION
  Report Type: 
  Country: DE (occurrence: DE)
  Receive Date: 20121210
  Receipt Date: 20121217
  Transmission Date: 20130627
  Serious: Yes (Other)
  Sender: FDA-Public Use
  Company Number: DE-ASTELLAS-2012EU010567

PATIENT
  Sex: Female
  Weight: 62 kg

DRUGS (1)
  1. VESIKUR [Suspect]
     Dosage: 5 mg, Unknown/D
     Route: 065

REACTIONS (2)
  - Speech disorder [Unknown]
  - Confusional state [Unknown]
